FAERS Safety Report 16311454 (Version 5)
Quarter: 2019Q2

REPORT INFORMATION
  Report Type: Spontaneous
  Country: ES (occurrence: ES)
  Receive Date: 20190514
  Receipt Date: 20190604
  Transmission Date: 20190711
  Serious: Yes (Hospitalization, Other)
  Sender: FDA-Public Use
  Company Number: ES-PFIZER INC-2019201088

PATIENT
  Age: 71 Year
  Sex: Female

DRUGS (8)
  1. CALCIUM FOLINATE [Suspect]
     Active Substance: LEUCOVORIN CALCIUM
     Indication: PANCREATIC CARCINOMA STAGE IV
     Dosage: UNK, CYCLIC (CYCLE WHEN TOXICITY APPEARS: 1)
  2. IRINOTECAN HCL [Suspect]
     Active Substance: IRINOTECAN HYDROCHLORIDE
     Indication: PANCREATIC CARCINOMA STAGE IV
     Dosage: UNK, CYCLIC (CYCLE WHEN TOXICITY APPEARS: 1)
  3. FLUOROURACIL. [Suspect]
     Active Substance: FLUOROURACIL
     Indication: PANCREATIC CARCINOMA STAGE IV
     Dosage: UNK, CYCLIC (CYCLE WHEN TOXICITY APPEARS: 1)
  4. OXALIPLATIN. [Suspect]
     Active Substance: OXALIPLATIN
     Indication: PANCREATIC CARCINOMA STAGE IV
     Dosage: UNK, CYCLIC (CYCLE WHEN TOXICITY APPEARS: 1)
  5. OXALIPLATIN. [Suspect]
     Active Substance: OXALIPLATIN
     Dosage: UNK, CYCLIC (REDUCED BY 75%)
  6. FLUOROURACIL. [Suspect]
     Active Substance: FLUOROURACIL
     Dosage: UNK, CYCLIC (REDUCED BY 75%)
  7. CALCIUM FOLINATE [Suspect]
     Active Substance: LEUCOVORIN CALCIUM
     Dosage: UNK, CYCLIC (REDUCED BY 75%)
  8. IRINOTECAN HCL [Suspect]
     Active Substance: IRINOTECAN HYDROCHLORIDE
     Dosage: UNK, CYCLIC (REDUCED BY 75%)

REACTIONS (6)
  - Hypocalcaemia [Recovered/Resolved]
  - Coagulopathy [Recovered/Resolved]
  - Leukopenia [Recovered/Resolved]
  - Enteritis [Recovered/Resolved]
  - Neutropenia [Recovered/Resolved]
  - Hypoalbuminaemia [Recovered/Resolved]
